FAERS Safety Report 12984022 (Version 1)
Quarter: 2016Q4

REPORT INFORMATION
  Report Type: Spontaneous
  Country: DE (occurrence: DE)
  Receive Date: 20161129
  Receipt Date: 20161129
  Transmission Date: 20170207
  Serious: Yes (Death)
  Sender: FDA-Public Use
  Company Number: DE-009507513-1611DEU012828

PATIENT
  Age: 54 Year
  Sex: Male

DRUGS (4)
  1. KEYTRUDA [Suspect]
     Active Substance: PEMBROLIZUMAB
     Indication: NON-SMALL CELL LUNG CANCER
     Dosage: 156 MG, EVERY 1 TOTAL (156MG 1 IN 1 TOTAL)
     Route: 042
     Dates: start: 20161025
  2. NOVAMINSULFON [Concomitant]
     Active Substance: METAMIZOLE
     Dosage: ^B. BEDARF^ (750 MG ORAL MILIGRAMS)
     Route: 048
  3. PANTOPRAZOLE [Concomitant]
     Active Substance: PANTOPRAZOLE SODIUM
     Indication: GASTRITIS
     Dosage: 20 MG, UNK
     Route: 048
     Dates: end: 20161025
  4. RIVAROXABAN [Concomitant]
     Active Substance: RIVAROXABAN
     Indication: PULMONARY EMBOLISM
     Dosage: 20 MG, UNK
     Route: 048
     Dates: start: 20161019, end: 20161025

REACTIONS (7)
  - Areflexia [Unknown]
  - Haematuria [Unknown]
  - Hyperventilation [Fatal]
  - Dyspnoea [Unknown]
  - Bradycardia [Fatal]
  - General physical health deterioration [Unknown]
  - Restlessness [Unknown]

NARRATIVE: CASE EVENT DATE: 20161025
